FAERS Safety Report 6111673-X (Version None)
Quarter: 2009Q1

REPORT INFORMATION
  Report Type: 
  Country: None (occurrence: None)
  Receive Date: 20090309
  Receipt Date: 20090225
  Transmission Date: 20090719
  Serious: Yes (Hospitalization)
  Sender: FDA-Public Use
  Company Number: 2009SP004184

PATIENT
  Age: 24 Year
  Sex: Female
  Weight: 68 kg

DRUGS (4)
  1. CLARITIN [Suspect]
     Indication: DERMATITIS CONTACT
     Dosage: 10 MG; UNK; PO
     Route: 048
     Dates: start: 20090127, end: 20090129
  2. CLEMASTINE FUMARATE [Suspect]
     Indication: DERMATITIS CONTACT
     Dosage: 2 MG ; UNK; PO
     Route: 048
     Dates: start: 20090127, end: 20090129
  3. ATARAX [Suspect]
     Indication: DERMATITIS CONTACT
     Dosage: 50 MG; PO
     Route: 048
     Dates: start: 20090127, end: 20090129
  4. PIMAFUCORT (HYDROCORTISONE, NATAMYCIN, NEOMYCIN) [Concomitant]

REACTIONS (5)
  - BALANCE DISORDER [None]
  - CONFUSIONAL STATE [None]
  - DIPLOPIA [None]
  - DRUG INTERACTION [None]
  - SOMNOLENCE [None]
